FAERS Safety Report 6552156-2 (Version None)
Quarter: 2010Q1

REPORT INFORMATION
  Report Type: 
  Country: None (occurrence: None)
  Receive Date: 20100121
  Receipt Date: 20100113
  Transmission Date: 20100710
  Serious: Yes (Other)
  Sender: FDA-Public Use
  Company Number: 2010US000113

PATIENT
  Age: 33 Year
  Sex: Female

DRUGS (8)
  1. PROGRAF [Suspect]
     Indication: HEART TRANSPLANT
     Dosage: 2 MG, BID, ORAL
     Route: 048
  2. CELLCEPT [Concomitant]
  3. LOPRESSOR [Concomitant]
  4. CALCIUM (CALCIUM) [Concomitant]
  5. ASCORBIC ACID [Concomitant]
  6. VITAMIN D (COLECALCIFEROL) [Concomitant]
  7. FOLIC ACID [Concomitant]
  8. PRENATAL VITAMINS (MINERALS NOS) [Concomitant]

REACTIONS (3)
  - ABORTION SPONTANEOUS [None]
  - DRUG EXPOSURE DURING PREGNANCY [None]
  - PREGNANCY [None]
